FAERS Safety Report 15049764 (Version 1)
Quarter: 2018Q2

REPORT INFORMATION
  Report Type: Spontaneous
  Country: IE (occurrence: IE)
  Receive Date: 20180622
  Receipt Date: 20180622
  Transmission Date: 20180711
  Serious: Yes (Life-Threatening)
  Sender: FDA-Public Use
  Company Number: PHHY2018IE020986

PATIENT
  Age: 46 Year
  Sex: Female

DRUGS (2)
  1. FLECAINIDE [Suspect]
     Active Substance: FLECAINIDE
     Indication: VENTRICULAR TACHYCARDIA
     Route: 065
  2. BISOPROLOL [Suspect]
     Active Substance: BISOPROLOL
     Indication: VENTRICULAR TACHYCARDIA
     Dosage: 2.5 MG, UNK
     Route: 065

REACTIONS (5)
  - Fatigue [Recovering/Resolving]
  - Drug tolerance decreased [Recovering/Resolving]
  - Depression [Recovering/Resolving]
  - Ventricular tachycardia [Recovering/Resolving]
  - Memory impairment [Recovering/Resolving]
